FAERS Safety Report 14258718 (Version 6)
Quarter: 2018Q1

REPORT INFORMATION
  Report Type: Report from Study
  Country: CN (occurrence: CN)
  Receive Date: 20171207
  Receipt Date: 20180331
  Transmission Date: 20180508
  Serious: Yes (Other)
  Sender: FDA-Public Use
  Company Number: CN-ROCHE-1683074

PATIENT
  Age: 54 Year
  Sex: Female
  Weight: 79 kg

DRUGS (2)
  1. AVASTIN [Suspect]
     Active Substance: BEVACIZUMAB
     Indication: COLORECTAL CANCER
     Route: 041
     Dates: start: 20151117
  2. AVASTIN [Suspect]
     Active Substance: BEVACIZUMAB
     Route: 041
     Dates: start: 20151129

REACTIONS (19)
  - Discomfort [Unknown]
  - Immunodeficiency [Unknown]
  - Asthenia [Unknown]
  - Thrombosis [Unknown]
  - Brain oedema [Unknown]
  - Insomnia [Unknown]
  - Ill-defined disorder [Unknown]
  - Carbuncle [Recovered/Resolved]
  - Pneumonia [Unknown]
  - Weight decreased [Unknown]
  - Rhinorrhoea [Unknown]
  - Hypertension [Unknown]
  - Protein urine present [Unknown]
  - Nasopharyngitis [Unknown]
  - White blood cell count decreased [Recovered/Resolved]
  - Nasopharyngitis [Recovered/Resolved]
  - Haemoptysis [Unknown]
  - Nausea [Unknown]
  - Vomiting [Unknown]

NARRATIVE: CASE EVENT DATE: 201605
